FAERS Safety Report 14826532 (Version 1)
Quarter: 2018Q2

REPORT INFORMATION
  Report Type: Spontaneous
  Country: US (occurrence: US)
  Receive Date: 20180404
  Receipt Date: 20180404
  Transmission Date: 20180711
  Serious: Yes (Other)
  Sender: FDA-Public Use
  Company Number: None

PATIENT
  Age: 62 Year
  Sex: Male
  Weight: 94.5 kg

DRUGS (4)
  1. SAW PALMETTO [Concomitant]
     Active Substance: HERBALS\SAW PALMETTO
  2. IBUPROFEN. [Concomitant]
     Active Substance: IBUPROFEN
  3. AZITHROMYCIN ANHYDROUS. [Suspect]
     Active Substance: AZITHROMYCIN ANHYDROUS
     Indication: BACTERIAL INFECTION
     Dosage: DAILY; ORAL; 06 TABLET(S)?
     Route: 048
     Dates: start: 20180115, end: 20180120
  4. LISINOPRIL. [Concomitant]
     Active Substance: LISINOPRIL

REACTIONS (7)
  - Dizziness [None]
  - Paranasal sinus discomfort [None]
  - Heart rate irregular [None]
  - Tinnitus [None]
  - Nasal discomfort [None]
  - Asthenia [None]
  - Adverse event [None]

NARRATIVE: CASE EVENT DATE: 20180404
